FAERS Safety Report 25536789 (Version 1)
Quarter: 2025Q3

REPORT INFORMATION
  Report Type: Spontaneous
  Country: CN (occurrence: CN)
  Receive Date: 20250710
  Receipt Date: 20250710
  Transmission Date: 20251021
  Serious: Yes (Other)
  Sender: Haleon PLC
  Company Number: CN-HALEON-2251521

PATIENT
  Age: 98 Year
  Sex: Male
  Weight: 75.4 kg

DRUGS (4)
  1. VOLTAREN [Suspect]
     Active Substance: DICLOFENAC SODIUM
     Indication: Spinal stenosis
     Route: 048
     Dates: start: 20250606, end: 20250612
  2. VOLTAREN [Suspect]
     Active Substance: DICLOFENAC SODIUM
     Indication: Pain
  3. LIMAPROST [Concomitant]
     Active Substance: LIMAPROST
     Indication: Lumbar spinal stenosis
     Route: 048
     Dates: start: 20250606, end: 20250612
  4. METHYLCOBALAMIN [Concomitant]
     Active Substance: METHYLCOBALAMIN
     Indication: Neuralgia
     Route: 048
     Dates: start: 20250606, end: 20250612

REACTIONS (1)
  - Hyperkalaemia [Recovered/Resolved]

NARRATIVE: CASE EVENT DATE: 20250610
